FAERS Safety Report 23111113 (Version 1)
Quarter: 2023Q4

REPORT INFORMATION
  Report Type: Spontaneous
  Country: GB (occurrence: GB)
  Receive Date: 20231026
  Receipt Date: 20231026
  Transmission Date: 20240109
  Serious: No
  Sender: FDA-Public Use
  Company Number: GB-JAZZ-2020-GB-015791

PATIENT
  Age: 11 Year
  Sex: Female

DRUGS (1)
  1. DEFITELIO [Suspect]
     Active Substance: DEFIBROTIDE SODIUM
     Indication: Thrombotic microangiopathy
     Dosage: UNKNOWN DOSE
     Route: 042

REACTIONS (1)
  - Off label use [Unknown]
